FAERS Safety Report 16123870 (Version 1)
Quarter: 2019Q1

REPORT INFORMATION
  Report Type: Spontaneous
  Country: JP (occurrence: JP)
  Receive Date: 20190327
  Receipt Date: 20190327
  Transmission Date: 20190418
  Serious: Yes (Other)
  Sender: FDA-Public Use
  Company Number: JP-PFIZER INC-2019130751

PATIENT
  Sex: Male

DRUGS (1)
  1. CAMPTO [Suspect]
     Active Substance: IRINOTECAN
     Indication: COLON CANCER
     Dosage: UNK, 1X/DAY (TOTAL OF 6 CYCLES)
     Route: 041
     Dates: start: 20181218

REACTIONS (1)
  - Retinal tear [Unknown]

NARRATIVE: CASE EVENT DATE: 20190319
